FAERS Safety Report 8144120-7 (Version None)
Quarter: 2012Q1

REPORT INFORMATION
  Report Type: 
  Country: None (occurrence: None)
  Receive Date: 20120217
  Receipt Date: 20120210
  Transmission Date: 20120608
  Serious: Yes (Hospitalization)
  Sender: FDA-Public Use
  Company Number: AT-ABBOTT-12P-009-0904255-00

PATIENT
  Age: 81 Year
  Sex: Male

DRUGS (14)
  1. SEROQUEL [Suspect]
     Dosage: 100 MG DAILY
     Route: 048
     Dates: start: 20111031, end: 20111103
  2. LAMICTAL [Suspect]
     Indication: PRODUCT USED FOR UNKNOWN INDICATION
     Dosage: 300 MG DAILY
     Dates: start: 20090101, end: 20111105
  3. SEROQUEL [Suspect]
     Indication: PRODUCT USED FOR UNKNOWN INDICATION
     Dosage: 50 MG DAILY
     Route: 048
     Dates: start: 20090101, end: 20111031
  4. SEROQUEL [Suspect]
     Dosage: 300 MG DAILY
     Route: 048
     Dates: start: 20111104, end: 20111107
  5. SEROQUEL [Suspect]
     Dosage: 150 MG DAILY
     Route: 048
     Dates: start: 20111031, end: 20111103
  6. SEROQUEL [Suspect]
     Dosage: 500 MG DAILY
     Route: 048
     Dates: start: 20111103, end: 20111104
  7. LAMICTAL [Suspect]
     Dosage: 100 MG DAILY
     Route: 048
     Dates: start: 20111105, end: 20111107
  8. DIGITOXIN TAB [Concomitant]
     Indication: PRODUCT USED FOR UNKNOWN INDICATION
     Dates: start: 20100101, end: 20111106
  9. LORAZEPAM [Suspect]
     Dosage: 3.75 MG DAILY
     Route: 042
     Dates: start: 20111107, end: 20111130
  10. LITHIUM CARBONATE [Suspect]
     Indication: PRODUCT USED FOR UNKNOWN INDICATION
     Dosage: DAILY
     Route: 048
     Dates: start: 20090101, end: 20111107
  11. MARCOUMAR [Concomitant]
     Indication: PRODUCT USED FOR UNKNOWN INDICATION
     Dates: start: 20111018
  12. LORAZEPAM [Suspect]
     Indication: PRODUCT USED FOR UNKNOWN INDICATION
     Dosage: 4 MG DAILY
     Route: 042
     Dates: start: 20111103, end: 20111107
  13. DEPAKENE [Suspect]
     Indication: PRODUCT USED FOR UNKNOWN INDICATION
     Dosage: 800 MG DAILY
     Route: 042
     Dates: start: 20111102, end: 20111104
  14. SPIRONOLACTONE [Suspect]
     Indication: PRODUCT USED FOR UNKNOWN INDICATION
     Dosage: 25 MG DAILY
     Route: 048
     Dates: start: 20111031, end: 20111106

REACTIONS (5)
  - SOPOR [None]
  - DYSPHORIA [None]
  - AGITATION [None]
  - SOMNOLENCE [None]
  - DELIRIUM [None]
